FAERS Safety Report 9648475 (Version 1)
Quarter: 2013Q4

REPORT INFORMATION
  Report Type: Spontaneous
  Country: US (occurrence: US)
  Receive Date: 20131028
  Receipt Date: 20131028
  Transmission Date: 20140711
  Serious: Yes (Other)
  Sender: FDA-Public Use
  Company Number: US-JNJFOC-20131013789

PATIENT
  Age: 59 Year
  Sex: Male

DRUGS (13)
  1. XARELTO [Suspect]
     Indication: CEREBROVASCULAR ACCIDENT PROPHYLAXIS
     Dosage: STRENGTH: 20 MG
     Route: 048
  2. XARELTO [Suspect]
     Indication: ATRIAL FIBRILLATION
     Dosage: STRENGTH: 20 MG
     Route: 048
  3. ASPIRIN [Concomitant]
     Dosage: STRENGTH: 81 MG
     Route: 065
  4. LIPITOR [Concomitant]
     Dosage: STRENGTH: 20 MG
     Route: 065
  5. BUPROPION [Concomitant]
     Route: 065
  6. COREG [Concomitant]
     Dosage: STRENGTH: 6.25 MG
     Route: 065
  7. LANOXIN [Concomitant]
     Dosage: STRENGTH: 125 MCG
     Route: 065
  8. LEVOTHYROXINE [Concomitant]
     Dosage: STRENGTH: 25 MCG
     Route: 065
  9. LASIX [Concomitant]
     Dosage: STRENGTH: 20 MG
     Route: 065
  10. LOSARTAN [Concomitant]
     Dosage: STRENGTH: 20 MG
     Route: 065
  11. PROTONIX [Concomitant]
     Route: 065
  12. POTASSIUM [Concomitant]
     Route: 042
  13. SPIROLACTONE [Concomitant]
     Dosage: DOSE: 12.5 (UNIT UNSPECIFIED)
     Route: 065

REACTIONS (1)
  - Ischaemic stroke [Recovered/Resolved]
